FAERS Safety Report 15564941 (Version 2)
Quarter: 2018Q4

REPORT INFORMATION
  Report Type: Spontaneous
  Country: US (occurrence: US)
  Receive Date: 20181030
  Receipt Date: 20181031
  Transmission Date: 20190205
  Serious: No
  Sender: FDA-Public Use
  Company Number: US-BAYER-2018-198578

PATIENT
  Age: 69 Year
  Sex: Female
  Weight: 56.96 kg

DRUGS (3)
  1. MIRALAX [Suspect]
     Active Substance: POLYETHYLENE GLYCOL 3350
     Indication: CONSTIPATION
     Dosage: UNK
  2. MIRALAX [Suspect]
     Active Substance: POLYETHYLENE GLYCOL 3350
     Indication: CONSTIPATION
     Dosage: UNK
     Route: 048
  3. MIRALAX [Suspect]
     Active Substance: POLYETHYLENE GLYCOL 3350
     Indication: CONSTIPATION
     Dosage: UNK

REACTIONS (9)
  - Off label use [Unknown]
  - Off label use [Unknown]
  - Product use in unapproved indication [Unknown]
  - Urine output increased [Not Recovered/Not Resolved]
  - Drug effective for unapproved indication [Unknown]
  - Product use issue [Unknown]
  - Gastrointestinal sounds abnormal [Unknown]
  - Product prescribing issue [Unknown]
  - Tendonitis [Unknown]

NARRATIVE: CASE EVENT DATE: 2017
